FAERS Safety Report 18631439 (Version 2)
Quarter: 2021Q1

REPORT INFORMATION
  Report Type: Spontaneous
  Country: CA (occurrence: CA)
  Receive Date: 20201218
  Receipt Date: 20210107
  Transmission Date: 20210419
  Serious: Yes (Other)
  Sender: FDA-Public Use
  Company Number: CA-BEH-2020126223

PATIENT
  Age: 39 Year
  Sex: Male
  Weight: 75 kg

DRUGS (14)
  1. CLOBAZAM. [Concomitant]
     Active Substance: CLOBAZAM
     Dosage: 10 MILLIGRAM, AM (BEFORE NOON)
  2. CARBAMAZEPINE. [Concomitant]
     Active Substance: CARBAMAZEPINE
     Dosage: 400 MILLIGRAM
     Route: 065
  3. AMLODIPINE [Concomitant]
     Active Substance: AMLODIPINE BESYLATE
     Dosage: 10 MILLIGRAM, QD
     Route: 065
  4. ALBUREX [Suspect]
     Active Substance: ALBUMIN HUMAN
     Indication: PLASMAPHERESIS
     Dosage: 500 MILLILITER X 5 BOTTLES, TOT
     Route: 042
     Dates: start: 20201028, end: 20201028
  5. CALCIUM CARBONATE. [Concomitant]
     Active Substance: CALCIUM CARBONATE
     Dosage: 1250 MILLIGRAM, ^BIO^ [SIC!]
     Route: 065
  6. QUETIAPINE. [Concomitant]
     Active Substance: QUETIAPINE
  7. LEVOTHYROXINE. [Concomitant]
     Active Substance: LEVOTHYROXINE
  8. CALCIUM GLUCONATE. [Concomitant]
     Active Substance: CALCIUM GLUCONATE
     Indication: APHERESIS
     Dosage: 1 GRAM
     Route: 042
     Dates: start: 20201028, end: 20201028
  9. PREDNISONE. [Concomitant]
     Active Substance: PREDNISONE
     Dosage: 30 MILLIGRAM
     Route: 065
  10. ESCITALOPRAM [Concomitant]
     Active Substance: ESCITALOPRAM OXALATE
     Dosage: 200 MILLIGRAM, QD
     Route: 065
  11. CELLCEPT [Concomitant]
     Active Substance: MYCOPHENOLATE MOFETIL\MYCOPHENOLATE MOFETIL HYDROCHLORIDE
     Dosage: 1500 MILLIGRAM ^BIO^ [SIC!]
     Route: 065
  12. CLOBAZAM. [Concomitant]
     Active Substance: CLOBAZAM
     Dosage: 30 MILLIGRAM, HS
     Route: 065
  13. PANTOPRAZOLE [Concomitant]
     Active Substance: PANTOPRAZOLE
     Dosage: 40 MILLIGRAM, QD
     Route: 065
  14. SOLU?MEDROL [Concomitant]
     Active Substance: METHYLPREDNISOLONE SODIUM SUCCINATE

REACTIONS (5)
  - Anaphylactic reaction [Recovered/Resolved]
  - Urticaria [Recovered/Resolved]
  - Chest pain [Recovered/Resolved]
  - Blood pressure decreased [Recovered/Resolved]
  - Hypotension [Recovered/Resolved]

NARRATIVE: CASE EVENT DATE: 20201028
